FAERS Safety Report 4700387-6 (Version None)
Quarter: 2005Q2

REPORT INFORMATION
  Report Type: 
  Country: None (occurrence: None)
  Receive Date: 20050627
  Receipt Date: 20040220
  Transmission Date: 20051028
  Serious: Yes (Other)
  Sender: FDA-Public Use
  Company Number: JP-ROCHE-360163

PATIENT
  Age: 5 Year
  Sex: Female
  Weight: 21 kg

DRUGS (10)
  1. TAMIFLU [Suspect]
     Dosage: DRY SYRUP.
     Route: 048
     Dates: start: 20040217, end: 20040219
  2. ANHIBA [Concomitant]
     Indication: PYREXIA
     Route: 054
     Dates: start: 20040217
  3. THEO-DUR [Concomitant]
     Dosage: FORMULATION REPORTED AS DRY SYRUP.
     Route: 048
     Dates: start: 20040209, end: 20040216
  4. PONTAL [Concomitant]
     Route: 048
     Dates: start: 20040209, end: 20040212
  5. ASTOMIN [Concomitant]
     Route: 048
     Dates: start: 20040209, end: 20040212
  6. PASETOCIN [Concomitant]
     Route: 048
     Dates: start: 20040209, end: 20040212
  7. RINDERON [Concomitant]
     Dates: start: 20040209, end: 20040212
  8. CYPROHEPTADINE HYDROCHLORIDE [Concomitant]
     Dosage: TRADE NAME: CYPROMIN.
     Route: 048
     Dates: start: 20040209, end: 20040212
  9. ZADITEN [Concomitant]
     Route: 048
     Dates: start: 20040212, end: 20040216
  10. SAWATENE [Concomitant]
     Route: 048
     Dates: start: 20040212, end: 20040216

REACTIONS (1)
  - ERYTHEMA MULTIFORME [None]
